FAERS Safety Report 11669701 (Version 1)
Quarter: 2015Q4

REPORT INFORMATION
  Report Type: Spontaneous
  Country: US (occurrence: US)
  Receive Date: 20151027
  Receipt Date: 20151027
  Transmission Date: 20160304
  Serious: No
  Sender: FDA-Public Use
  Company Number: US-ELI_LILLY_AND_COMPANY-US201004005331

PATIENT
  Sex: Female

DRUGS (1)
  1. FORTEO [Suspect]
     Active Substance: TERIPARATIDE
     Indication: OSTEOPOROSIS
     Dosage: 20 UG, DAILY (1/D)
     Dates: start: 20100318, end: 20100412

REACTIONS (4)
  - Constipation [Recovered/Resolved]
  - Fatigue [Recovered/Resolved]
  - Gastritis [Recovered/Resolved]
  - Irritable bowel syndrome [Recovered/Resolved]

NARRATIVE: CASE EVENT DATE: 2010
